FAERS Safety Report 5386967-6 (Version None)
Quarter: 2007Q3

REPORT INFORMATION
  Report Type: 
  Country: None (occurrence: None)
  Receive Date: 20070713
  Receipt Date: 20070704
  Transmission Date: 20080115
  Serious: Yes (Disabling, Other)
  Sender: FDA-Public Use
  Company Number: BR-PFIZER INC-2007055234

PATIENT
  Sex: Male
  Weight: 112 kg

DRUGS (5)
  1. DOSTINEX [Suspect]
     Indication: NEOPLASM
     Route: 048
  2. FOSAMAX [Concomitant]
  3. CALCIUM WITH VITAMIN D [Concomitant]
     Route: 048
  4. METFORMIN HCL [Concomitant]
     Route: 048
  5. CAPTOPRIL [Concomitant]
     Route: 048

REACTIONS (4)
  - BLOOD PRESSURE ABNORMAL [None]
  - FUNGAL INFECTION [None]
  - HEADACHE [None]
  - VISION BLURRED [None]
